FAERS Safety Report 17264764 (Version 1)
Quarter: 2020Q1

REPORT INFORMATION
  Report Type: Spontaneous
  Country: SG (occurrence: SG)
  Receive Date: 20200113
  Receipt Date: 20200113
  Transmission Date: 20200409
  Serious: Yes (Disabling)
  Sender: FDA-Public Use
  Company Number: SG-OTSUKA-2020_000981

PATIENT
  Age: 23 Year
  Sex: Female
  Weight: 68.6 kg

DRUGS (2)
  1. REXULTI [Suspect]
     Active Substance: BREXPIPRAZOLE
     Indication: PRODUCT USED FOR UNKNOWN INDICATION
     Dosage: 0.5 MG, UNK
     Route: 065
  2. REXULTI [Suspect]
     Active Substance: BREXPIPRAZOLE
     Dosage: 2 MG, UNK
     Route: 065

REACTIONS (3)
  - Weight increased [Unknown]
  - Musculoskeletal stiffness [Unknown]
  - Tremor [Unknown]

NARRATIVE: CASE EVENT DATE: 20191226
